FAERS Safety Report 16127146 (Version 1)
Quarter: 2019Q2

REPORT INFORMATION
  Report Type: Spontaneous
  Country: US (occurrence: US)
  Receive Date: 20190327
  Receipt Date: 20190327
  Transmission Date: 20190711
  Serious: Yes (Disabling, Other)
  Sender: FDA-Public Use
  Company Number: None

PATIENT
  Age: 87 Year
  Sex: Female
  Weight: 74.25 kg

DRUGS (6)
  1. WALKER SEAT [Concomitant]
     Active Substance: DEVICE
  2. CHAMOMILE [Concomitant]
     Active Substance: CHAMOMILE
  3. SALAMPAS [Concomitant]
  4. FUROSEMIDE. [Suspect]
     Active Substance: FUROSEMIDE
     Indication: GASTROOESOPHAGEAL REFLUX DISEASE
     Dosage: ?          OTHER STRENGTH:?;QUANTITY:2 TABLET(S);OTHER FREQUENCY:UNSURE;?
     Route: 048
     Dates: start: 20190326, end: 20190327
  5. FISH OIL OMEGA 3 [Concomitant]
     Active Substance: FISH OIL
  6. CALCIUM [Concomitant]
     Active Substance: CALCIUM

REACTIONS (5)
  - Oropharyngeal pain [None]
  - Malaise [None]
  - Dyspnoea [None]
  - Chest pain [None]
  - Paraesthesia [None]

NARRATIVE: CASE EVENT DATE: 20190326
